FAERS Safety Report 5861594-2 (Version None)
Quarter: 2008Q3

REPORT INFORMATION
  Report Type: 
  Country: None (occurrence: None)
  Receive Date: 20080826
  Receipt Date: 20080818
  Transmission Date: 20090109
  Serious: Yes (Hospitalization, Other)
  Sender: FDA-Public Use
  Company Number: 2008BI021099

PATIENT
  Age: 41 Year
  Sex: Female
  Weight: 50.8029 kg

DRUGS (1)
  1. AVONEX [Suspect]
     Indication: MULTIPLE SCLEROSIS
     Dosage: 30 UG; QW; IM
     Route: 030
     Dates: start: 20060301

REACTIONS (14)
  - DEPRESSION [None]
  - DRUG HYPERSENSITIVITY [None]
  - EPILEPSY [None]
  - FATIGUE [None]
  - GRAND MAL CONVULSION [None]
  - HEADACHE [None]
  - HYPOAESTHESIA [None]
  - INFLUENZA LIKE ILLNESS [None]
  - MIGRAINE [None]
  - MYALGIA [None]
  - PAIN [None]
  - PYREXIA [None]
  - SKIN DISCOLOURATION [None]
  - STOMACH DISCOMFORT [None]
